APPROVED DRUG PRODUCT: LONHALA MAGNAIR KIT
Active Ingredient: GLYCOPYRROLATE
Strength: 25MCG/ML
Dosage Form/Route: SOLUTION;INHALATION
Application: N208437 | Product #001
Applicant: SUMITOMO PHARMA AMERICA INC
Approved: Dec 5, 2017 | RLD: Yes | RS: No | Type: DISCN

PATENTS:
Patent 10940110 | Expires: Feb 26, 2029
Patent 10744277 | Expires: Dec 7, 2036
Patent 10376661 | Expires: Sep 14, 2035
Patent 9789270 | Expires: Oct 30, 2030
Patent 11278683 | Expires: Aug 16, 2026
Patent 9604018 | Expires: May 16, 2033
Patent 9168556 | Expires: Sep 1, 2032
Patent 10688518 | Expires: Nov 12, 2036
Patent 9265900 | Expires: Dec 7, 2028